FAERS Safety Report 6669500-8 (Version None)
Quarter: 2010Q2

REPORT INFORMATION
  Report Type: 
  Country: None (occurrence: None)
  Receive Date: 20100406
  Receipt Date: 20100330
  Transmission Date: 20101027
  Serious: Yes (Hospitalization)
  Sender: FDA-Public Use
  Company Number: PHHY2010JP20529

PATIENT
  Sex: Female

DRUGS (3)
  1. COMTAN CMT+TAB [Suspect]
     Indication: DRUG EFFECT DECREASED
     Dosage: 300 MG, DAILY
     Route: 048
     Dates: start: 20081128, end: 20090708
  2. CARBIDOPA AND LEVODOPA [Concomitant]
     Indication: PARKINSON'S DISEASE
     Dosage: 300 MG, UNK
     Route: 048
  3. CABERGOLINE [Concomitant]
     Indication: PARKINSON'S DISEASE
     Dosage: 02 MG, UNK
     Route: 048

REACTIONS (2)
  - DYSKINESIA [None]
  - SPINAL COMPRESSION FRACTURE [None]
